FAERS Safety Report 4317252-9 (Version None)
Quarter: 2004Q1

REPORT INFORMATION
  Report Type: 
  Country: None (occurrence: None)
  Receive Date: 20040312
  Receipt Date: 20040225
  Transmission Date: 20041129
  Serious: Yes (Hospitalization, Other)
  Sender: FDA-Public Use
  Company Number: 2001-BP-00750 (2)

PATIENT
  Age: 7 Day
  Sex: Female

DRUGS (4)
  1. NEVIRAPINE (SP) [Suspect]
     Indication: PROPHYLAXIS AGAINST HIV INFECTION
     Dosage: 0.6 ML (DAILY)
     Route: 048
     Dates: start: 20010105, end: 20010109
  2. EMOLLENT CREAM (EMOLLIENTS AND PROTECTIVES) [Concomitant]
  3. CHLOROMYCETHIN EYE OINTMENT (CHLORAMPHENICOL) [Concomitant]
  4. PHYTONADIONE [Concomitant]

REACTIONS (9)
  - ACIDOSIS [None]
  - BIRTH MARK [None]
  - DIARRHOEA NEONATAL [None]
  - LEUKOPENIA NEONATAL [None]
  - LYMPH NODE PALPABLE [None]
  - NEUTROPENIA NEONATAL [None]
  - RASH ERYTHEMATOUS [None]
  - SEPSIS NEONATAL [None]
  - SKIN DESQUAMATION [None]
